FAERS Safety Report 4506648-8 (Version None)
Quarter: 2004Q4

REPORT INFORMATION
  Report Type: 
  Country: None (occurrence: None)
  Receive Date: 20041122
  Receipt Date: 20030605
  Transmission Date: 20050328
  Serious: Yes (Death, Hospitalization, Other)
  Sender: FDA-Public Use
  Company Number: US-MERCK-0306USA00754

PATIENT
  Age: 78 Year
  Sex: Female
  Weight: 55 kg

DRUGS (4)
  1. VIOXX [Suspect]
     Indication: OSTEOARTHRITIS
     Route: 048
     Dates: start: 20010401
  2. VIOXX [Suspect]
     Indication: SPINAL COLUMN STENOSIS
     Route: 048
     Dates: start: 20010401
  3. FOSAMAX [Concomitant]
     Route: 048
  4. ASPIRIN [Concomitant]
     Route: 065

REACTIONS (23)
  - ABDOMINAL DISTENSION [None]
  - ABDOMINAL PAIN [None]
  - ACTIVATED PARTIAL THROMBOPLASTIN TIME PROLONGED [None]
  - ACUTE MYOCARDIAL INFARCTION [None]
  - ANAEMIA [None]
  - ANGINA PECTORIS [None]
  - ASTHENIA [None]
  - BLOOD CALCIUM DECREASED [None]
  - BLOOD GLUCOSE INCREASED [None]
  - BLOOD POTASSIUM DECREASED [None]
  - BLOOD PRESSURE INCREASED [None]
  - BLOOD SODIUM DECREASED [None]
  - BLOOD UREA INCREASED [None]
  - BRONCHOPNEUMONIA [None]
  - CONFUSIONAL STATE [None]
  - CONVULSION [None]
  - DUODENAL ULCER [None]
  - LUNG INFILTRATION [None]
  - MYOCARDIAL ISCHAEMIA [None]
  - PAIN [None]
  - PRURITUS [None]
  - VOMITING [None]
  - WHITE BLOOD CELL COUNT INCREASED [None]
